FAERS Safety Report 5976455-8 (Version None)
Quarter: 2008Q4

REPORT INFORMATION
  Report Type: 
  Country: None (occurrence: None)
  Receive Date: 20081126
  Receipt Date: 20081117
  Transmission Date: 20090506
  Serious: Yes (Hospitalization)
  Sender: FDA-Public Use
  Company Number: 231980K08USA

PATIENT
  Age: 86 Year
  Sex: 0
  Weight: 73 kg

DRUGS (2)
  1. REBIF [Suspect]
     Indication: MULTIPLE SCLEROSIS
     Dosage: 44 MCG, 3 IN 1 WEEKS, SUBCUTANEOUS
     Route: 058
     Dates: start: 20080627
  2. LUPRON [Concomitant]

REACTIONS (3)
  - BLOOD DISORDER [None]
  - INFECTION [None]
  - URINARY TRACT INFECTION [None]
